FAERS Safety Report 23916175 (Version 1)
Quarter: 2024Q2

REPORT INFORMATION
  Report Type: Spontaneous
  Country: US (occurrence: US)
  Receive Date: 20240529
  Receipt Date: 20240529
  Transmission Date: 20240715
  Serious: No
  Sender: FDA-Public Use
  Company Number: US-SA-SAC20240524000295

PATIENT
  Age: 60 Year
  Sex: Female
  Weight: 65.31 kg

DRUGS (1)
  1. DUPIXENT [Suspect]
     Active Substance: DUPILUMAB
     Indication: Asthma
     Dosage: 300 MG, QOW
     Route: 058
     Dates: start: 202403

REACTIONS (7)
  - Gait disturbance [Unknown]
  - Increased appetite [Unknown]
  - Hot flush [Unknown]
  - Anxiety [Unknown]
  - Muscle tightness [Unknown]
  - Pain in extremity [Unknown]
  - Arthralgia [Unknown]

NARRATIVE: CASE EVENT DATE: 20240301
